FAERS Safety Report 7301702-X (Version None)
Quarter: 2011Q1

REPORT INFORMATION
  Report Type: 
  Country: None (occurrence: None)
  Receive Date: 20110218
  Receipt Date: 20110209
  Transmission Date: 20110831
  Serious: Yes (Hospitalization)
  Sender: FDA-Public Use
  Company Number: US-ROCHE-713834

PATIENT
  Sex: Male
  Weight: 68.7 kg

DRUGS (11)
  1. PEMETREXED [Suspect]
     Route: 042
     Dates: start: 20100322
  2. CARBOPLATIN [Suspect]
     Dosage: DOSE REPORTED AS 6 D/F
     Route: 042
     Dates: start: 20100322
  3. BEVACIZUMAB [Suspect]
     Route: 042
     Dates: start: 20100322
  4. PERCOCET [Concomitant]
  5. DEXMETHSONE [Concomitant]
     Dates: start: 20100223
  6. PHENERGAN [Concomitant]
  7. VITAMIN B-12 [Concomitant]
     Dates: start: 20100209
  8. BEVACIZUMAB [Suspect]
     Route: 042
     Dates: start: 20100615
  9. PEMETREXED [Suspect]
     Route: 042
     Dates: start: 20100524
  10. CARBOPLATIN [Suspect]
     Dosage: DOSE: 4.5 DOSE FORM
     Route: 042
     Dates: start: 20100524, end: 20100524
  11. ACID FOLIC [Concomitant]

REACTIONS (1)
  - CHRONIC OBSTRUCTIVE PULMONARY DISEASE [None]
